FAERS Safety Report 13467613 (Version 5)
Quarter: 2017Q2

REPORT INFORMATION
  Report Type: Spontaneous
  Country: US (occurrence: US)
  Receive Date: 20170421
  Receipt Date: 20170531
  Transmission Date: 20170830
  Serious: Yes (Hospitalization, Other)
  Sender: FDA-Public Use
  Company Number: US-RARE DISEASE THERAPEUTICS, INC.-1065637

PATIENT
  Age: 6 Year
  Sex: Female
  Weight: 24.8 kg

DRUGS (8)
  1. CYTARABINE. [Concomitant]
     Active Substance: CYTARABINE
  2. PURIXAN [Suspect]
     Active Substance: MERCAPTOPURINE
     Dates: start: 20170505
  3. ONCASPAR [Concomitant]
     Active Substance: PEGASPARGASE
  4. CYCLOPHOSPHAMIDE. [Concomitant]
     Active Substance: CYCLOPHOSPHAMIDE
  5. BACTRIM [Concomitant]
     Active Substance: SULFAMETHOXAZOLE\TRIMETHOPRIM
  6. VINCRISTINE SULFATE. [Concomitant]
     Active Substance: VINCRISTINE SULFATE
  7. PURIXAN [Suspect]
     Active Substance: MERCAPTOPURINE
     Dates: start: 20170303, end: 20170323
  8. PURIXAN [Suspect]
     Active Substance: MERCAPTOPURINE
     Dates: start: 20170303, end: 20170323

REACTIONS (7)
  - Febrile neutropenia [Recovered/Resolved]
  - Mucosal inflammation [Recovered/Resolved]
  - Allergic transfusion reaction [Recovered/Resolved]
  - Escherichia urinary tract infection [Recovered/Resolved]
  - Respiratory tract infection viral [Recovered/Resolved]
  - Anaemia [Recovered/Resolved]
  - Thrombocytopenia [Not Recovered/Not Resolved]

NARRATIVE: CASE EVENT DATE: 20170329
